FAERS Safety Report 8174599-6 (Version None)
Quarter: 2012Q1

REPORT INFORMATION
  Report Type: 
  Country: None (occurrence: None)
  Receive Date: 20120229
  Receipt Date: 20120224
  Transmission Date: 20120608
  Serious: No
  Sender: FDA-Public Use
  Company Number: US-PFIZER INC-2012038744

PATIENT
  Sex: Male
  Weight: 68.027 kg

DRUGS (2)
  1. ZOLOFT [Concomitant]
     Dosage: UNK
  2. ALPRAZOLAM [Suspect]
     Indication: ANXIETY
     Dosage: 2 MG, 3X/DAY
     Route: 048
     Dates: start: 20050101

REACTIONS (2)
  - DRUG INEFFECTIVE [None]
  - INTENTIONAL OVERDOSE [None]
